FAERS Safety Report 12114142 (Version 1)
Quarter: 2016Q1

REPORT INFORMATION
  Report Type: Report from Study
  Country: ES (occurrence: ES)
  Receive Date: 20160225
  Receipt Date: 20160225
  Transmission Date: 20160526
  Serious: Yes (Hospitalization)
  Sender: FDA-Public Use
  Company Number: ES-ROCHE-1079116

PATIENT
  Age: 67 Year
  Sex: Male
  Weight: 63 kg

DRUGS (37)
  1. OBINUTUZUMAB [Suspect]
     Active Substance: OBINUTUZUMAB
     Indication: DIFFUSE LARGE B-CELL LYMPHOMA
     Dosage: LAST VOLUME TAKEN:250 ML AND LAST DOSE CONCENTRATION TAKEN:4 MG/ML; MOST RECENT DOSE PRIOR TO SAE: 0
     Route: 042
     Dates: start: 20120607
  2. PARACETAMOL [Concomitant]
     Active Substance: ACETAMINOPHEN
     Indication: PYREXIA
     Route: 065
     Dates: start: 20120615, end: 20120615
  3. BROMAZEPAM [Concomitant]
     Active Substance: BROMAZEPAM
     Route: 065
     Dates: start: 20120615, end: 20120618
  4. CLARITHROMYCIN. [Concomitant]
     Active Substance: CLARITHROMYCIN
     Indication: PNEUMONIA ASPIRATION
     Route: 065
     Dates: start: 20120630, end: 20120707
  5. VINCRISTINE [Suspect]
     Active Substance: VINCRISTINE
     Indication: DIFFUSE LARGE B-CELL LYMPHOMA
     Dosage: IV PUSH LAST DOSE TAKEN: 2 MG;MOST RECENT DOSE PRIOR TO SAE: 07/JUN/2012
     Route: 040
     Dates: start: 20120607
  6. PARACETAMOL [Concomitant]
     Active Substance: ACETAMINOPHEN
     Indication: FEBRILE NEUTROPENIA
     Route: 065
     Dates: start: 20120616, end: 20120618
  7. ONDANSETRON [Concomitant]
     Active Substance: ONDANSETRON
     Indication: NAUSEA
     Route: 065
     Dates: start: 20120607, end: 20120607
  8. VITAMIN K [Concomitant]
     Active Substance: PHYTONADIONE
     Route: 065
     Dates: start: 20120705, end: 20120712
  9. IPRATROPIUM BROMIDE. [Concomitant]
     Active Substance: IPRATROPIUM BROMIDE
     Route: 065
     Dates: start: 20120711, end: 20120813
  10. CYCLOPHOSPHAMIDE. [Suspect]
     Active Substance: CYCLOPHOSPHAMIDE
     Indication: DIFFUSE LARGE B-CELL LYMPHOMA
     Dosage: LAST DOSE TAKEN:1245 MG;MOST RECENT DOSE PRIOR TO SAE: 07/JUN/2012
     Route: 042
     Dates: start: 20120607
  11. DOXORUBICIN [Suspect]
     Active Substance: DOXORUBICIN
     Indication: DIFFUSE LARGE B-CELL LYMPHOMA
     Dosage: LAST DOSE TAKEN:83 MG;MOST RECENT DOSE PRIOR TO SAE: 07/JUN/2012
     Route: 042
     Dates: start: 20120607
  12. LEVOFLOXACIN. [Concomitant]
     Active Substance: LEVOFLOXACIN
     Indication: PNEUMONIA ASPIRATION
     Route: 065
     Dates: start: 20120716, end: 20120726
  13. SALBUTAMOL [Concomitant]
     Active Substance: ALBUTEROL
     Route: 065
     Dates: start: 20120722, end: 20120726
  14. DEXCHLORPHENIRAMINE [Concomitant]
     Active Substance: DEXCHLORPHENIRAMINE
     Indication: PREMEDICATION
     Route: 065
     Dates: start: 20120607, end: 20121106
  15. PREDNISONE. [Suspect]
     Active Substance: PREDNISONE
     Indication: DIFFUSE LARGE B-CELL LYMPHOMA
     Dosage: LAST DOSE TAKEN:100MG;MOST RECENT DOSE PRIOR TO SAE: 11/JUN/2012
     Route: 048
     Dates: start: 20120607
  16. PANTOPRAZOLE [Concomitant]
     Active Substance: PANTOPRAZOLE SODIUM
     Route: 065
     Dates: start: 20120614, end: 20120628
  17. PARACETAMOL [Concomitant]
     Active Substance: ACETAMINOPHEN
     Indication: PREMEDICATION
     Route: 065
     Dates: start: 20120607, end: 20121106
  18. ACTOCORTIN [Concomitant]
     Indication: INFUSION RELATED REACTION
     Route: 065
     Dates: start: 20120607, end: 20120607
  19. LEVOFLOXACIN. [Concomitant]
     Active Substance: LEVOFLOXACIN
     Indication: INFECTION
     Route: 065
     Dates: start: 20120615, end: 20120615
  20. NEUPOGEN [Concomitant]
     Active Substance: FILGRASTIM
     Indication: FEBRILE NEUTROPENIA
     Route: 065
     Dates: start: 20120616, end: 20120617
  21. LORAZEPAM. [Concomitant]
     Active Substance: LORAZEPAM
     Indication: PROPHYLAXIS
     Route: 065
     Dates: start: 20120619, end: 20120620
  22. SODIUM LAURYL SULFATE [Concomitant]
     Active Substance: SODIUM LAURYL SULFATE
     Indication: CONSTIPATION
     Route: 065
     Dates: start: 20120703, end: 20120705
  23. DEXCHLORPHENIRAMINE [Concomitant]
     Active Substance: DEXCHLORPHENIRAMINE
     Indication: INFUSION RELATED REACTION
     Route: 065
     Dates: start: 20120607, end: 20120607
  24. PIPERACILLIN [Concomitant]
     Active Substance: PIPERACILLIN
     Indication: INFECTION
     Route: 065
     Dates: start: 20120616, end: 20120620
  25. FLUCONAZOLE. [Concomitant]
     Active Substance: FLUCONAZOLE
     Indication: OESOPHAGITIS
     Route: 065
     Dates: start: 20120619, end: 20120725
  26. AUGMENTINE [Concomitant]
     Active Substance: AMOXICILLIN\CLAVULANATE POTASSIUM
     Indication: PNEUMONIA ASPIRATION
     Route: 065
     Dates: start: 20120701, end: 20120705
  27. MEROPENEM. [Concomitant]
     Active Substance: MEROPENEM
     Indication: PNEUMONIA ASPIRATION
     Route: 065
     Dates: start: 20120705, end: 20120715
  28. BROMAZEPAM [Concomitant]
     Active Substance: BROMAZEPAM
     Route: 065
     Dates: start: 20120621, end: 20120625
  29. OBINUTUZUMAB [Suspect]
     Active Substance: OBINUTUZUMAB
     Dosage: DOSE CONCENTRATION OF LAST GA101 TAKEN:1000 MG/ML
     Route: 042
     Dates: start: 20120607
  30. NEUPOGEN [Concomitant]
     Active Substance: FILGRASTIM
     Route: 065
     Dates: start: 20120706, end: 20120707
  31. FLUCONAZOLE. [Concomitant]
     Active Substance: FLUCONAZOLE
     Indication: CANDIDA INFECTION
  32. FUROSEMIDE. [Concomitant]
     Active Substance: FUROSEMIDE
     Route: 065
     Dates: start: 20120722, end: 20120722
  33. LORAZEPAM. [Concomitant]
     Active Substance: LORAZEPAM
     Route: 065
     Dates: start: 20120626
  34. PARACETAMOL [Concomitant]
     Active Substance: ACETAMINOPHEN
     Indication: INFUSION RELATED REACTION
     Route: 065
     Dates: start: 20120607, end: 20120607
  35. TAZOBACTAM [Concomitant]
     Active Substance: TAZOBACTAM
     Indication: INFECTION
     Route: 065
     Dates: start: 20120616, end: 20120620
  36. METOCLOPRAMIDE. [Concomitant]
     Active Substance: METOCLOPRAMIDE
     Indication: VOMITING
     Route: 065
     Dates: start: 20120614, end: 20120625
  37. OMEPRAZOLE. [Concomitant]
     Active Substance: OMEPRAZOLE
     Indication: PROPHYLAXIS
     Route: 065
     Dates: start: 20120629, end: 20120707

REACTIONS (2)
  - Dysphagia [Recovered/Resolved]
  - Acquired tracheo-oesophageal fistula [Recovered/Resolved]

NARRATIVE: CASE EVENT DATE: 20120611
